FAERS Safety Report 21338311 (Version 1)
Quarter: 2022Q3

REPORT INFORMATION
  Report Type: Report from Study
  Country: IN (occurrence: IN)
  Receive Date: 20220915
  Receipt Date: 20220915
  Transmission Date: 20221027
  Serious: Yes (Death)
  Sender: FDA-Public Use
  Company Number: IN-PFIZER INC-PV202200063113

PATIENT

DRUGS (8)
  1. CYTARABINE [Suspect]
     Active Substance: CYTARABINE
     Indication: Acute myeloid leukaemia
     Dosage: PUSH ON DAYS 1 TO 10 INCLUSIVE
     Route: 042
  2. CYTARABINE [Suspect]
     Active Substance: CYTARABINE
     Dosage: PUSH ON DAYS 1 TO 8 INCLUSIVE
     Route: 042
  3. CYTARABINE [Suspect]
     Active Substance: CYTARABINE
     Dosage: 3.0 G/M2 12-HOURLY BY 4-HOUR IV INFUSION ON DAYS 1, 3 AND 5
     Route: 042
  4. CYTARABINE [Suspect]
     Active Substance: CYTARABINE
     Dosage: 3.0 G/M2 12-HOURLY BY 4-HOUR IV INFUSION ON DAYS 1, 3 AND 5
     Route: 042
  5. DAUNORUBICIN HYDROCHLORIDE [Suspect]
     Active Substance: DAUNORUBICIN HYDROCHLORIDE
     Indication: Acute myeloid leukaemia
     Dosage: INFUSION OVER 1 HOUR ON DAYS 1, 2 AND 3
     Route: 042
  6. DAUNORUBICIN HYDROCHLORIDE [Suspect]
     Active Substance: DAUNORUBICIN HYDROCHLORIDE
     Dosage: INFUSION OVER 1 HOUR ON DAYS 1, 2 AND 3
     Route: 042
  7. ETOPOSIDE [Suspect]
     Active Substance: ETOPOSIDE
     Indication: Acute myeloid leukaemia
     Dosage: (BY 4-HOUR), INFUSION ON DAYS 1-5 INCLUSIVE
     Route: 042
  8. ETOPOSIDE [Suspect]
     Active Substance: ETOPOSIDE
     Dosage: (BY 4-HOUR), INFUSION ON DAYS 1-5 INCLUSIVE
     Route: 042

REACTIONS (2)
  - Febrile neutropenia [Fatal]
  - Sepsis [Fatal]
